FAERS Safety Report 5717826-4 (Version None)
Quarter: 2008Q2

REPORT INFORMATION
  Report Type: 
  Country: None (occurrence: None)
  Receive Date: 20080425
  Receipt Date: 20080415
  Transmission Date: 20081010
  Serious: Yes (Other)
  Sender: FDA-Public Use
  Company Number: CA-JNJFOC-20080405090

PATIENT
  Age: 10 Year
  Sex: Male

DRUGS (1)
  1. CHILDRENS TYLENOL COLD AND COUGH [Suspect]
     Indication: DRUG USE FOR UNKNOWN INDICATION
     Route: 048

REACTIONS (3)
  - FEAR [None]
  - HALLUCINATION [None]
  - THINKING ABNORMAL [None]
